FAERS Safety Report 9663206 (Version 3)
Quarter: 2014Q1

REPORT INFORMATION
  Report Type: Spontaneous
  Country: US (occurrence: US)
  Receive Date: 20131101
  Receipt Date: 20140127
  Transmission Date: 20141002
  Serious: Yes (Hospitalization)
  Sender: FDA-Public Use
  Company Number: US-BIOGENIDEC-2013BI103367

PATIENT
  Age: 61 Year
  Sex: Female

DRUGS (2)
  1. AVONEX [Suspect]
     Indication: MULTIPLE SCLEROSIS
     Route: 030
     Dates: start: 20001129
  2. AVONEX [Suspect]
     Indication: MULTIPLE SCLEROSIS
     Route: 030
     Dates: start: 201208

REACTIONS (5)
  - Upper limb fracture [Recovered/Resolved]
  - Memory impairment [Unknown]
  - Injection site bruising [Recovered/Resolved]
  - Fall [Recovered/Resolved]
  - Injury associated with device [Recovered/Resolved]
